FAERS Safety Report 18532307 (Version 2)
Quarter: 2020Q4

REPORT INFORMATION
  Report Type: Spontaneous
  Country: US (occurrence: US)
  Receive Date: 20201123
  Receipt Date: 20201210
  Transmission Date: 20210114
  Serious: Yes (Hospitalization, Other)
  Sender: FDA-Public Use
  Company Number: US-AUROBINDO-AUR-APL-2020-056959

PATIENT
  Age: 23 Year
  Sex: Male

DRUGS (2)
  1. ZIPRASIDONE HYDROCHLORIDE 80MG [Interacting]
     Active Substance: ZIPRASIDONE HYDROCHLORIDE
     Dosage: 20 DOSAGE FORM, 1 TOTAL
     Route: 065
  2. ZIPRASIDONE HYDROCHLORIDE 80MG [Suspect]
     Active Substance: ZIPRASIDONE HYDROCHLORIDE
     Indication: SCHIZOPHRENIA
     Dosage: 1 DOSAGE FORM, TWO TIMES A DAY (PILL)
     Route: 065

REACTIONS (7)
  - Delusion [Recovered/Resolved]
  - Condition aggravated [Recovered/Resolved]
  - Food interaction [Recovered/Resolved]
  - Psychotic disorder [Recovered/Resolved]
  - Hallucination, auditory [Recovered/Resolved]
  - Paranoia [Recovered/Resolved]
  - Overdose [Recovered/Resolved]
